FAERS Safety Report 14368068 (Version 1)
Quarter: 2018Q1

REPORT INFORMATION
  Report Type: Spontaneous
  Country: US (occurrence: US)
  Receive Date: 20180109
  Receipt Date: 20180109
  Transmission Date: 20180509
  Serious: Yes (Death)
  Sender: FDA-Public Use
  Company Number: None

PATIENT
  Age: 90 Year
  Sex: Male

DRUGS (14)
  1. CARVEDILOL. [Concomitant]
     Active Substance: CARVEDILOL
  2. OXYBUTYNIN. [Concomitant]
     Active Substance: OXYBUTYNIN CHLORIDE
  3. POT CHLORIDE [Concomitant]
     Active Substance: POTASSIUM CHLORIDE
  4. LASIX [Concomitant]
     Active Substance: FUROSEMIDE
  5. LANTUS [Concomitant]
     Active Substance: INSULIN GLARGINE
  6. OPDIVO [Suspect]
     Active Substance: NIVOLUMAB
     Indication: PROSTATE CANCER
     Dosage: ?          OTHER FREQUENCY:Q14 DAYS;?
     Route: 042
     Dates: start: 20171212
  7. CLOPIDOGREL [Concomitant]
     Active Substance: CLOPIDOGREL BISULFATE
  8. PREDNISONE. [Concomitant]
     Active Substance: PREDNISONE
  9. NEURONTIN [Concomitant]
     Active Substance: GABAPENTIN
  10. WARFARIN [Concomitant]
     Active Substance: WARFARIN
  11. ZYTIGA [Suspect]
     Active Substance: ABIRATERONE ACETATE
     Indication: PROSTATE CANCER
     Route: 048
     Dates: start: 20170830
  12. HUMALOG [Concomitant]
     Active Substance: INSULIN LISPRO
  13. ATORVASTATIN [Concomitant]
     Active Substance: ATORVASTATIN
  14. RAMIPRIL. [Concomitant]
     Active Substance: RAMIPRIL

REACTIONS (1)
  - Death [None]

NARRATIVE: CASE EVENT DATE: 20180102
